FAERS Safety Report 24573358 (Version 1)
Quarter: 2024Q4

REPORT INFORMATION
  Report Type: Spontaneous
  Country: IT (occurrence: None)
  Receive Date: 20241102
  Receipt Date: 20241102
  Transmission Date: 20250114
  Serious: Yes (Other)
  Sender: SUPERNUS PHARMACEUTICALS, INC.
  Company Number: IT-ARIS GLOBAL-SUP202410-004030

PATIENT
  Age: 7 Year
  Sex: Male

DRUGS (1)
  1. OXCARBAZEPINE [Suspect]
     Active Substance: OXCARBAZEPINE
     Indication: Partial seizures
     Dosage: NOT PROVIDED

REACTIONS (2)
  - Encephalopathy [Recovered/Resolved]
  - Status epilepticus [Recovered/Resolved]
